FAERS Safety Report 8158623-2 (Version None)
Quarter: 2012Q1

REPORT INFORMATION
  Report Type: 
  Country: None (occurrence: None)
  Receive Date: 20120223
  Receipt Date: 20120218
  Transmission Date: 20120608
  Serious: Yes (Hospitalization)
  Sender: FDA-Public Use
  Company Number: US-JNJFOC-20120209901

PATIENT
  Sex: Female
  Weight: 50.8 kg

DRUGS (2)
  1. ULTRAM [Suspect]
     Indication: BACK PAIN
     Dosage: 1 OR TWO DIALY
     Route: 048
     Dates: start: 20110501, end: 20120217
  2. MULTI-VITAMINS [Concomitant]
     Indication: NUTRITIONAL SUPPORT
     Route: 065

REACTIONS (2)
  - MATERNAL EXPOSURE DURING PREGNANCY [None]
  - HOSPITALISATION [None]
